FAERS Safety Report 18954884 (Version 1)
Quarter: 2021Q1

REPORT INFORMATION
  Report Type: Report from Study
  Country: US (occurrence: US)
  Receive Date: 20210301
  Receipt Date: 20210301
  Transmission Date: 20210420
  Serious: Yes (Hospitalization, Other)
  Sender: FDA-Public Use
  Company Number: US-SHIRE-US202009311

PATIENT
  Age: 50 Year
  Sex: Male

DRUGS (13)
  1. TEDUGLUTIDE [Suspect]
     Active Substance: TEDUGLUTIDE
     Indication: SHORT-BOWEL SYNDROME
     Dosage: 1.63 MILLIGRAM, 1X/DAY:QD
     Route: 058
     Dates: start: 20190413
  2. TEDUGLUTIDE [Suspect]
     Active Substance: TEDUGLUTIDE
     Dosage: 1.63 MILLIGRAM, QD
     Route: 058
     Dates: start: 20201005
  3. TEDUGLUTIDE [Suspect]
     Active Substance: TEDUGLUTIDE
     Indication: SHORT-BOWEL SYNDROME
     Dosage: 1.63 MILLIGRAM, 1X/DAY:QD
     Route: 058
     Dates: start: 20190413
  4. TEDUGLUTIDE [Suspect]
     Active Substance: TEDUGLUTIDE
     Dosage: 3.16 MILLIGRAM, QD
     Route: 058
     Dates: start: 20190413
  5. TEDUGLUTIDE [Suspect]
     Active Substance: TEDUGLUTIDE
     Indication: SHORT-BOWEL SYNDROME
     Dosage: 1.63 MILLIGRAM, 1X/DAY:QD
     Route: 058
     Dates: start: 20190413
  6. TEDUGLUTIDE [Suspect]
     Active Substance: TEDUGLUTIDE
     Dosage: 1.63 MILLIGRAM, QD
     Route: 058
     Dates: start: 20201005
  7. TEDUGLUTIDE [Suspect]
     Active Substance: TEDUGLUTIDE
     Dosage: 3.16 MILLIGRAM, QD
     Route: 058
     Dates: start: 20190413
  8. TEDUGLUTIDE [Suspect]
     Active Substance: TEDUGLUTIDE
     Dosage: 3.16 MILLIGRAM, QD
     Route: 058
     Dates: start: 20190413
  9. TEDUGLUTIDE [Suspect]
     Active Substance: TEDUGLUTIDE
     Dosage: 1.63 MILLIGRAM, QD
     Route: 058
     Dates: start: 20201005
  10. TEDUGLUTIDE [Suspect]
     Active Substance: TEDUGLUTIDE
     Dosage: 1.63 MILLIGRAM, QD
     Route: 058
     Dates: start: 20201005
  11. TEDUGLUTIDE [Suspect]
     Active Substance: TEDUGLUTIDE
     Indication: SHORT-BOWEL SYNDROME
     Dosage: 1.63 MILLIGRAM, 1X/DAY:QD
     Route: 058
     Dates: start: 20190413
  12. TEDUGLUTIDE [Suspect]
     Active Substance: TEDUGLUTIDE
     Dosage: 3.16 MILLIGRAM, QD
     Route: 058
     Dates: start: 20190413
  13. TPN [AMINO ACIDS NOS;CARBOHYDRATES NOS;MINERALS NOS;VITAMINS NOS] [Concomitant]
     Active Substance: AMINO ACIDS\CARBOHYDRATES\MINERALS\VITAMINS
     Indication: PRODUCT USED FOR UNKNOWN INDICATION

REACTIONS (3)
  - Dehydration [Unknown]
  - Poisoning [Unknown]
  - Infection [Unknown]

NARRATIVE: CASE EVENT DATE: 202002
